FAERS Safety Report 11877884 (Version 1)
Quarter: 2015Q4

REPORT INFORMATION
  Report Type: Spontaneous
  Country: US (occurrence: US)
  Receive Date: 20151230
  Receipt Date: 20151230
  Transmission Date: 20160305
  Serious: No
  Sender: FDA-Public Use
  Company Number: US-SUN PHARMACEUTICAL INDUSTRIES LTD-2015US-101721

PATIENT
  Sex: Female
  Weight: 87.35 kg

DRUGS (1)
  1. SALBUTAMOL [Suspect]
     Active Substance: ALBUTEROL
     Indication: ENERGY INCREASED
     Dosage: 1 DF, BID
     Route: 048

REACTIONS (1)
  - Therapeutic response unexpected [Unknown]
